FAERS Safety Report 6679281-X (Version None)
Quarter: 2010Q2

REPORT INFORMATION
  Report Type: 
  Country: None (occurrence: None)
  Receive Date: 20100413
  Receipt Date: 20100407
  Transmission Date: 20101027
  Serious: Yes (Hospitalization)
  Sender: FDA-Public Use
  Company Number: CA-ELI_LILLY_AND_COMPANY-CA201003002428

PATIENT
  Sex: Male

DRUGS (18)
  1. GEMCITABINE HCL [Suspect]
     Indication: PANCREATIC CARCINOMA
     Dosage: 1000 MG/M2, OTHER
     Route: 042
     Dates: start: 20100204, end: 20100225
  2. GEMCITABINE HCL [Suspect]
     Dosage: UNK, OTHER
     Route: 042
     Dates: start: 20100311
  3. ATORVASTATIN CALCIUM [Concomitant]
     Dosage: UNK, UNK
     Route: 048
     Dates: start: 19990101
  4. BISOPROLOL FUMARATE [Concomitant]
     Indication: HYPERTENSION
     Dosage: UNK, UNK
     Route: 048
     Dates: start: 20090101
  5. ACETYLSALICYLIC ACID [Concomitant]
     Indication: PROPHYLAXIS
     Dosage: UNK, UNK
     Route: 048
     Dates: start: 19990101
  6. ACETYLSALICYLIC ACID [Concomitant]
     Route: 048
     Dates: start: 19990101
  7. ZOPICLONE [Concomitant]
     Indication: INSOMNIA
     Route: 048
     Dates: start: 19990101
  8. RAMIPRIL [Concomitant]
     Indication: HYPERTENSION
     Route: 048
     Dates: start: 20060101
  9. SENNOSIDE [Concomitant]
     Indication: CONSTIPATION
     Route: 048
     Dates: start: 20050101
  10. HYDROMORPHONE HCL [Concomitant]
     Indication: PAIN
     Route: 048
     Dates: start: 20091201
  11. DOCUSATE [Concomitant]
     Indication: CONSTIPATION
     Route: 048
     Dates: start: 20050101
  12. ACETAMINOPHEN [Concomitant]
     Indication: ABDOMINAL PAIN
     Route: 048
     Dates: start: 20090101
  13. DEXAMETHASONE [Concomitant]
     Indication: PROPHYLAXIS
     Route: 042
     Dates: start: 20100204
  14. ONDANSETRON [Concomitant]
     Indication: PROPHYLAXIS
     Route: 042
     Dates: start: 20100218
  15. TINZAPARIN [Concomitant]
     Indication: MITRAL VALVE INCOMPETENCE
     Route: 048
     Dates: start: 20100121
  16. METHADONE HCL [Concomitant]
     Indication: PAIN
     Route: 048
     Dates: start: 20100210
  17. LACTULOSE [Concomitant]
     Indication: CONSTIPATION
     Route: 048
     Dates: start: 20100218
  18. PANTOPRAZOLE SODIUM [Concomitant]
     Route: 048
     Dates: start: 20100203

REACTIONS (1)
  - GENERAL PHYSICAL HEALTH DETERIORATION [None]
